FAERS Safety Report 13993219 (Version 1)
Quarter: 2017Q3

REPORT INFORMATION
  Report Type: Spontaneous
  Country: FR (occurrence: FR)
  Receive Date: 20170920
  Receipt Date: 20170920
  Transmission Date: 20171128
  Serious: Yes (Hospitalization)
  Sender: FDA-Public Use
  Company Number: FR-FRESENIUS KABI-FK201707826

PATIENT
  Age: 74 Year
  Sex: Female

DRUGS (7)
  1. DEXAMETHASONE INJECTION (MANUFACTURER UNKNOWN) [Suspect]
     Active Substance: DEXAMETHASONE
     Indication: WALDENSTROM^S MACROGLOBULINAEMIA
     Route: 065
     Dates: start: 2005, end: 201408
  2. CYCLOPHOSPHAMIDE. [Suspect]
     Active Substance: CYCLOPHOSPHAMIDE
     Indication: WALDENSTROM^S MACROGLOBULINAEMIA
     Route: 065
     Dates: start: 2005, end: 201408
  3. IDELALISIB [Suspect]
     Active Substance: IDELALISIB
     Indication: WALDENSTROM^S MACROGLOBULINAEMIA
     Route: 065
     Dates: start: 201409, end: 201503
  4. RITUXIMAB. [Suspect]
     Active Substance: RITUXIMAB
     Indication: WALDENSTROM^S MACROGLOBULINAEMIA
     Route: 065
     Dates: start: 2005, end: 201408
  5. BORTEZOMIB [Suspect]
     Active Substance: BORTEZOMIB
     Indication: WALDENSTROM^S MACROGLOBULINAEMIA
     Route: 065
     Dates: start: 2005, end: 201408
  6. IBRUTINIB [Suspect]
     Active Substance: IBRUTINIB
     Indication: WALDENSTROM^S MACROGLOBULINAEMIA
     Route: 065
     Dates: start: 201506
  7. FLUDARABINE [Suspect]
     Active Substance: FLUDARABINE PHOSPHATE
     Indication: WALDENSTROM^S MACROGLOBULINAEMIA
     Route: 065
     Dates: start: 2005, end: 201408

REACTIONS (1)
  - Meningitis cryptococcal [Unknown]
